FAERS Safety Report 22089790 (Version 2)
Quarter: 2023Q1

REPORT INFORMATION
  Report Type: Spontaneous
  Country: US (occurrence: US)
  Receive Date: 20230313
  Receipt Date: 20230322
  Transmission Date: 20230417
  Serious: No
  Sender: FDA-Public Use
  Company Number: US-LUPIN PHARMACEUTICALS INC.-2023-01931

PATIENT

DRUGS (2)
  1. QUINAPRIL [Suspect]
     Active Substance: QUINAPRIL
     Indication: Hypertension
     Dosage: 20 MILLIGRAM, BID (1 TABLET TWICE DAILY BY MOUTH)
     Route: 048
  2. QUINAPRIL [Suspect]
     Active Substance: QUINAPRIL
     Dosage: 20 MILLIGRAM, BID (1 TABLET TWICE DAILY BY MOUTH)
     Route: 048

REACTIONS (2)
  - Recalled product administered [Unknown]
  - No adverse event [Unknown]
